FAERS Safety Report 7263117-2 (Version None)
Quarter: 2011Q1

REPORT INFORMATION
  Report Type: 
  Country: None (occurrence: None)
  Receive Date: 20110130
  Receipt Date: 20101007
  Transmission Date: 20110831
  Serious: No
  Sender: FDA-Public Use
  Company Number: US-ABBOTT-10P-163-0677635-00

PATIENT
  Age: 83 Year
  Sex: Female

DRUGS (4)
  1. HUMIRA [Suspect]
     Indication: CROHN'S DISEASE
     Route: 058
     Dates: start: 20100801, end: 20100921
  2. PREDNISONE [Concomitant]
     Indication: PRODUCT USED FOR UNKNOWN INDICATION
  3. WARFARIN [Concomitant]
     Indication: ATRIAL FIBRILLATION
  4. WARFARIN [Concomitant]
     Indication: THROMBOSIS

REACTIONS (7)
  - DIZZINESS [None]
  - OROPHARYNGEAL PAIN [None]
  - RASH MACULAR [None]
  - INCREASED UPPER AIRWAY SECRETION [None]
  - INSOMNIA [None]
  - ASTHENIA [None]
  - NAUSEA [None]
